FAERS Safety Report 8806613 (Version 2)
Quarter: 2012Q4

REPORT INFORMATION
  Report Type: 
  Country: US (occurrence: US)
  Receive Date: 20120925
  Receipt Date: 20121004
  Transmission Date: 20130627
  Serious: Yes (Hospitalization)
  Sender: FDA-Public Use
  Company Number: US-BAYER-2012-097633

PATIENT
  Age: 19 Year
  Sex: Female

DRUGS (5)
  1. YAZ [Suspect]
  2. YASMIN [Suspect]
  3. OCELLA [Suspect]
  4. FERROUS SULFATE [Concomitant]
  5. LAMICTAL [Concomitant]

REACTIONS (3)
  - Injury [None]
  - Pulmonary embolism [None]
  - Deep vein thrombosis [None]
